FAERS Safety Report 25838312 (Version 1)
Quarter: 2025Q3

REPORT INFORMATION
  Report Type: Report from Study
  Country: US (occurrence: US)
  Receive Date: 20250923
  Receipt Date: 20250923
  Transmission Date: 20251021
  Serious: No
  Sender: MALLINCKRODT
  Company Number: US-MALLINCKRODT-MNK202505928

PATIENT
  Sex: Male

DRUGS (1)
  1. CORTICOTROPIN [Suspect]
     Active Substance: CORTICOTROPIN
     Indication: Blepharitis

REACTIONS (4)
  - Muscle atrophy [Unknown]
  - Weight increased [Unknown]
  - Injection site discolouration [Unknown]
  - Injection site inflammation [Unknown]
